FAERS Safety Report 10450421 (Version 1)
Quarter: 2014Q3

REPORT INFORMATION
  Report Type: Spontaneous
  Country: US (occurrence: US)
  Receive Date: 20140912
  Receipt Date: 20140912
  Transmission Date: 20150326
  Serious: No
  Sender: FDA-Public Use
  Company Number: US-009507513-1409USA003201

PATIENT
  Age: 62 Year
  Sex: Male

DRUGS (1)
  1. MOMETASONE FUROATE (WARRICK) [Suspect]
     Active Substance: MOMETASONE FUROATE
     Indication: GRANULOMA SKIN
     Dosage: UNK
     Route: 061

REACTIONS (1)
  - Drug ineffective [Unknown]
